FAERS Safety Report 7458541-9 (Version None)
Quarter: 2011Q2

REPORT INFORMATION
  Report Type: 
  Country: None (occurrence: None)
  Receive Date: 20110504
  Receipt Date: 20110422
  Transmission Date: 20111010
  Serious: Yes (Death, Hospitalization)
  Sender: FDA-Public Use
  Company Number: US-ACTELION-A-US2011-44340

PATIENT

DRUGS (12)
  1. LEVALBUTEROL HYDROCHLORIDE [Concomitant]
  2. ASPIRIN [Concomitant]
  3. FORMOTEROL FUMARATE [Concomitant]
  4. ZOFRAN [Concomitant]
  5. PROTONIX [Concomitant]
  6. TRACLEER [Suspect]
     Dosage: 62.5, BID
     Route: 048
     Dates: start: 20080204, end: 20080305
  7. PULMICORT [Concomitant]
  8. MAGNESIUM OXIDE [Concomitant]
  9. PRAVACHOL [Concomitant]
  10. ENOXAPARIN [Concomitant]
  11. TRACLEER [Suspect]
     Indication: PULMONARY ARTERIAL HYPERTENSION
     Dosage: 125 MG, BID
     Route: 048
     Dates: start: 20080305, end: 20110120
  12. AZITHROMYCIN [Concomitant]

REACTIONS (3)
  - BRADYCARDIA [None]
  - WEIGHT INCREASED [None]
  - CARDIAC ARREST [None]
